FAERS Safety Report 7897161-9 (Version None)
Quarter: 2011Q4

REPORT INFORMATION
  Report Type: 
  Country: None (occurrence: None)
  Receive Date: 20111107
  Receipt Date: 20111024
  Transmission Date: 20120403
  Serious: Yes (Other)
  Sender: FDA-Public Use
  Company Number: GB-ELI_LILLY_AND_COMPANY-GB201110006040

PATIENT
  Age: 37 Year
  Sex: Male
  Weight: 147 kg

DRUGS (2)
  1. OLANZAPINE [Suspect]
     Dosage: 300 MG, 1 / 2 WEEKS
     Route: 030
     Dates: start: 20110503
  2. OLANZAPINE [Suspect]
     Indication: SCHIZOPHRENIA, PARANOID TYPE
     Dosage: 210 MG, 1 / 2 WEEKS
     Route: 030
     Dates: start: 20110405, end: 20110503

REACTIONS (2)
  - OEDEMA PERIPHERAL [None]
  - HYPOTHYROIDISM [None]
